FAERS Safety Report 20223128 (Version 1)
Quarter: 2021Q4

REPORT INFORMATION
  Report Type: Spontaneous
  Country: AU (occurrence: AU)
  Receive Date: 20211223
  Receipt Date: 20211223
  Transmission Date: 20220303
  Serious: Yes (Hospitalization, Other)
  Sender: FDA-Public Use
  Company Number: AU-MYLANLABS-2009S1000829

PATIENT
  Age: 76 Year
  Sex: Female

DRUGS (7)
  1. EPIPEN [Suspect]
     Active Substance: EPINEPHRINE
     Indication: Angioedema
     Dosage: 0.3 MILLIGRAM
  2. EPIPEN [Suspect]
     Active Substance: EPINEPHRINE
     Indication: Urticaria
  3. OXPRENOLOL [Concomitant]
     Active Substance: OXPRENOLOL
     Dosage: 20 MILLIGRAM
  4. RALOXIFENE [Concomitant]
     Active Substance: RALOXIFENE
     Dosage: 60 MILLIGRAM
  5. RANITIDINE [Concomitant]
     Active Substance: RANITIDINE
     Dosage: 150 MILLIGRAM
  6. PROMETHAZINE HYDROCHLORIDE [Concomitant]
     Active Substance: PROMETHAZINE HYDROCHLORIDE
     Dosage: UNK
  7. HYDROCORTISONE [Concomitant]
     Active Substance: HYDROCORTISONE
     Dosage: UNK

REACTIONS (5)
  - Stress cardiomyopathy [Recovered/Resolved]
  - Angina pectoris [Recovered/Resolved]
  - Myocardial necrosis marker increased [Unknown]
  - Cardiomyopathy [Unknown]
  - Electrocardiogram abnormal [Unknown]
